FAERS Safety Report 15239256 (Version 1)
Quarter: 2018Q3

REPORT INFORMATION
  Report Type: Report from Study
  Country: DE (occurrence: DE)
  Receive Date: 20180803
  Receipt Date: 20180803
  Transmission Date: 20181010
  Serious: Yes (Other)
  Sender: FDA-Public Use
  Company Number: DE-MYLANLABS-2018M1058045

PATIENT
  Sex: Female

DRUGS (6)
  1. WATER FOR INJECTION [Concomitant]
     Active Substance: WATER
     Indication: VEHICLE SOLUTION USE
     Dosage: 7.2ML
     Route: 041
  2. CYCLOPHOSPHAMIDE. [Concomitant]
     Active Substance: CYCLOPHOSPHAMIDE
     Indication: HER-2 POSITIVE BREAST CANCER
     Dosage: EVERY THREE WEEKS
     Route: 065
  3. PACLITAXEL. [Concomitant]
     Active Substance: PACLITAXEL
     Indication: HER-2 POSITIVE BREAST CANCER
     Route: 042
  4. EPIRUBICIN [Suspect]
     Active Substance: EPIRUBICIN
     Indication: HER-2 POSITIVE BREAST CANCER
     Dosage: EVERY THREE WEEKS
     Route: 042
  5. TRASTUZUMAB. [Suspect]
     Active Substance: TRASTUZUMAB
     Indication: HER-2 POSITIVE BREAST CANCER
     Dosage: EVERY THREE WEEKS? ADJUVANT PHASE
     Route: 041
  6. TRASTUZUMAB. [Suspect]
     Active Substance: TRASTUZUMAB
     Indication: HER-2 POSITIVE BREAST CANCER
     Dosage: NEOADJUVANT PHASE
     Route: 041

REACTIONS (1)
  - Ventricular extrasystoles [Unknown]
